FAERS Safety Report 4689082-X (Version None)
Quarter: 2005Q2

REPORT INFORMATION
  Report Type: 
  Country: None (occurrence: None)
  Receive Date: 20050613
  Receipt Date: 20050602
  Transmission Date: 20051028
  Serious: Yes (Other)
  Sender: FDA-Public Use
  Company Number: 200515130GDDC

PATIENT
  Age: 61 Year
  Sex: Female

DRUGS (2)
  1. ARAVA [Suspect]
     Indication: RHEUMATOID ARTHRITIS
     Route: 048
     Dates: start: 20041130, end: 20050513
  2. DIHYDROCODEINE [Concomitant]
     Indication: PAIN
     Dosage: DOSE: 30-60
     Route: 048
     Dates: start: 20050506

REACTIONS (4)
  - ALANINE AMINOTRANSFERASE INCREASED [None]
  - BACK PAIN [None]
  - PAIN IN EXTREMITY [None]
  - VAGINAL ULCERATION [None]
